FAERS Safety Report 9553537 (Version 3)
Quarter: 2014Q1

REPORT INFORMATION
  Report Type: Spontaneous
  Country: IT (occurrence: IT)
  Receive Date: 20130925
  Receipt Date: 20140107
  Transmission Date: 20141002
  Serious: Yes (Hospitalization, Other)
  Sender: FDA-Public Use
  Company Number: IT-009507513-1309ITA010819

PATIENT
  Age: 56 Year
  Sex: Male

DRUGS (7)
  1. ISENTRESS [Suspect]
     Indication: ANTIRETROVIRAL THERAPY
     Dosage: 800 MG, DAILY
     Route: 048
     Dates: start: 20100201, end: 20130822
  2. REYATAZ [Interacting]
     Indication: ANTIRETROVIRAL THERAPY
     Dosage: 300 MG DAILY
     Route: 048
     Dates: start: 20100201, end: 20130822
  3. NORVIR [Interacting]
     Indication: ANTIRETROVIRAL THERAPY
     Dosage: 100 MG DAILY
     Route: 048
     Dates: start: 20100201, end: 20130822
  4. CRESTOR [Interacting]
     Indication: HYPERCHOLESTEROLAEMIA
     Dosage: 20 MG DAILY
     Route: 048
     Dates: start: 2010, end: 2013
  5. MEROPENEM [Concomitant]
     Indication: ANTIBIOTIC THERAPY
     Dosage: 3000 MG DAILY
     Route: 042
     Dates: start: 20130809, end: 20130824
  6. TARGOSID [Concomitant]
     Indication: ANTIBIOTIC THERAPY
     Dosage: 800 MG, DAILY (STRENGTH- 400MG/3ML)
     Route: 042
     Dates: start: 20130809, end: 20130824
  7. PANTORC [Concomitant]
     Indication: PROPHYLAXIS AGAINST GASTROINTESTINAL ULCER
     Dosage: 40 MG DAILY
     Route: 042
     Dates: start: 20130809, end: 20130820

REACTIONS (2)
  - Drug interaction [Recovered/Resolved]
  - Rhabdomyolysis [Recovered/Resolved]
